FAERS Safety Report 6555605-9 (Version None)
Quarter: 2010Q1

REPORT INFORMATION
  Report Type: 
  Country: None (occurrence: None)
  Receive Date: 20100128
  Receipt Date: 20100122
  Transmission Date: 20100710
  Serious: Yes (Life-Threatening, Hospitalization)
  Sender: FDA-Public Use
  Company Number: PE-BRISTOL-MYERS SQUIBB COMPANY-14675532

PATIENT
  Age: 72 Year
  Sex: Female

DRUGS (13)
  1. ABATACEPT [Suspect]
     Indication: RHEUMATOID ARTHRITIS
     Dosage: INTERRUPTED ON 22JUN09.ROUTE OF ADMIN-ALSO VIA SC.
     Route: 058
     Dates: start: 20090302
  2. PLACEBO [Suspect]
     Indication: RHEUMATOID ARTHRITIS
     Dosage: INTERRUPTED ON 22JUN09.ROUTE OF ADMIN-ALSO VIA SC.
     Route: 042
     Dates: start: 20090302
  3. METHOTREXATE [Suspect]
     Indication: RHEUMATOID ARTHRITIS
     Dates: start: 20071018, end: 20090622
  4. PREDNISONE [Concomitant]
     Dates: start: 20020321
  5. NAPROXEN [Concomitant]
     Dates: start: 20080222
  6. FOLIC ACID [Concomitant]
     Dates: start: 20060220
  7. ALPRAZOLAM [Concomitant]
     Dates: start: 20070118
  8. CALCIUM CARBONATE [Concomitant]
     Dates: start: 20060222
  9. RANITIDINE [Concomitant]
     Dates: start: 20090127
  10. ARTIFICIAL TEARS [Concomitant]
     Dates: start: 20030326
  11. ENALAPRIL MALEATE [Concomitant]
     Dates: start: 20041103
  12. METOCLOPRAMIDE [Concomitant]
     Dates: start: 20090127
  13. ANTACID TAB [Concomitant]
     Dates: start: 20090127

REACTIONS (1)
  - INTERSTITIAL LUNG DISEASE [None]
